FAERS Safety Report 17521756 (Version 1)
Quarter: 2020Q1

REPORT INFORMATION
  Report Type: Report from Study
  Country: CN (occurrence: CN)
  Receive Date: 20200310
  Receipt Date: 20200310
  Transmission Date: 20200409
  Serious: Yes (Other)
  Sender: FDA-Public Use
  Company Number: CN-ASTRAZENECA-2020SE35074

PATIENT
  Sex: Male

DRUGS (4)
  1. BYETTA [Suspect]
     Active Substance: EXENATIDE
     Indication: TYPE 2 DIABETES MELLITUS
     Dosage: 5.0UG UNKNOWN
     Route: 065
     Dates: start: 2017
  2. ACARBOSE. [Concomitant]
     Active Substance: ACARBOSE
     Dosage: ACARBOSE 1 TABLET FOR EACH MEAL (3 TABLETS IN THREE MEALS)
  3. METFORMIN HYDROCHLORIDE. [Concomitant]
     Active Substance: METFORMIN HYDROCHLORIDE
     Dosage: 1 TABLET BEFORE BREAKFAST, 1 TABLET BEFORE LUNCH AND 2 TABLETS BEFORE DINNER
  4. BYETTA [Suspect]
     Active Substance: EXENATIDE
     Indication: TYPE 2 DIABETES MELLITUS
     Dosage: 10.0UG UNKNOWN
     Route: 065
     Dates: start: 201911, end: 202001

REACTIONS (1)
  - Blood glucose increased [Unknown]

NARRATIVE: CASE EVENT DATE: 202001
